FAERS Safety Report 7606102-0 (Version None)
Quarter: 2011Q3

REPORT INFORMATION
  Report Type: 
  Country: None (occurrence: None)
  Receive Date: 20110713
  Receipt Date: 20110704
  Transmission Date: 20111222
  Serious: Yes (Other)
  Sender: FDA-Public Use
  Company Number: DE-TEVA-288937GER

PATIENT
  Sex: Female
  Weight: 72 kg

DRUGS (3)
  1. BETAMETHASON [Concomitant]
     Indication: MATERNAL THERAPY TO ENHANCE FOETAL LUNG MATURITY
     Route: 030
     Dates: start: 20091119, end: 20091119
  2. CLOMIPRAMINE HYDROCHLORIDE [Suspect]
     Indication: BIPOLAR DISORDER
     Dosage: 150 MILLIGRAM;
     Route: 048
     Dates: start: 20090408, end: 20091120
  3. FOLIO FORTE [Concomitant]
     Indication: PROPHYLAXIS OF NEURAL TUBE DEFECT
     Route: 048

REACTIONS (1)
  - EPISTAXIS [None]
